FAERS Safety Report 15749285 (Version 6)
Quarter: 2020Q1

REPORT INFORMATION
  Report Type: Spontaneous
  Country: US (occurrence: US)
  Receive Date: 20181221
  Receipt Date: 20200127
  Transmission Date: 20200409
  Serious: Yes (Other)
  Sender: FDA-Public Use
  Company Number: US-PFIZER INC-2018441322

PATIENT
  Age: 73 Year
  Sex: Female

DRUGS (3)
  1. XELJANZ [Suspect]
     Active Substance: TOFACITINIB CITRATE
     Dosage: 5 MG, 2X/DAY
     Route: 048
     Dates: start: 201809
  2. XELJANZ [Suspect]
     Active Substance: TOFACITINIB CITRATE
     Indication: RHEUMATOID ARTHRITIS
     Dosage: 5 MG, 2X/DAY (1 TABLET TWICE DAILY)
     Route: 048
     Dates: start: 20180831
  3. METOPROLOL TARTRATE. [Suspect]
     Active Substance: METOPROLOL TARTRATE
     Indication: BLOOD PRESSURE ABNORMAL
     Dosage: UNK

REACTIONS (12)
  - Ligament rupture [Unknown]
  - Fall [Unknown]
  - Joint injury [Unknown]
  - Arthralgia [Unknown]
  - Muscle spasms [Unknown]
  - Diarrhoea [Unknown]
  - Dyspnoea [Unknown]
  - Chest pain [Unknown]
  - Musculoskeletal pain [Unknown]
  - Anaemia [Unknown]
  - Tremor [Unknown]
  - Pneumonia [Unknown]

NARRATIVE: CASE EVENT DATE: 2019
